FAERS Safety Report 5706146-X (Version None)
Quarter: 2008Q2

REPORT INFORMATION
  Report Type: 
  Country: None (occurrence: None)
  Receive Date: 20080415
  Receipt Date: 20080408
  Transmission Date: 20081010
  Serious: Yes (Hospitalization)
  Sender: FDA-Public Use
  Company Number: FR-TEVA-169831ISR

PATIENT
  Sex: Female

DRUGS (3)
  1. COPAXONE [Suspect]
     Indication: MULTIPLE SCLEROSIS
     Route: 058
  2. CLONAZEPAM [Concomitant]
  3. ZOPICLONE [Concomitant]

REACTIONS (1)
  - CRYPTOGENIC ORGANISING PNEUMONIA [None]
